FAERS Safety Report 23773736 (Version 1)
Quarter: 2024Q2

REPORT INFORMATION
  Report Type: Report from Study
  Country: US (occurrence: US)
  Receive Date: 20240423
  Receipt Date: 20240423
  Transmission Date: 20240715
  Serious: Yes (Other)
  Sender: FDA-Public Use
  Company Number: US-VALIDUS PHARMACEUTICALS LLC-US-VDP-2024-019206

PATIENT

DRUGS (6)
  1. LASIX [Suspect]
     Active Substance: FUROSEMIDE
     Indication: Swelling
     Dosage: UNK
     Route: 065
  2. REMODULIN [Suspect]
     Active Substance: TREPROSTINIL
     Indication: Pulmonary arterial hypertension
     Dosage: UNK, CONTINUING
     Route: 058
     Dates: start: 202312
  3. REMODULIN [Suspect]
     Active Substance: TREPROSTINIL
     Dosage: 0.02003 MICROGRAM/KILOGRAM, CONTINUING
     Route: 058
  4. REMODULIN [Suspect]
     Active Substance: TREPROSTINIL
     Indication: Pulmonary arterial hypertension
     Dosage: UNK, CONTINUING
     Route: 058
  5. REMODULIN [Suspect]
     Active Substance: TREPROSTINIL
     Dosage: 0.02713 MICROGRAM/KILOGRAM, CONTINUING
     Route: 058
  6. LISINOPRIL [Concomitant]
     Active Substance: LISINOPRIL
     Indication: Product used for unknown indication
     Dosage: UNK
     Route: 065

REACTIONS (13)
  - Dyspnoea at rest [Unknown]
  - Pulmonary arterial hypertension [Unknown]
  - Bronchitis [Unknown]
  - Ocular hyperaemia [Unknown]
  - Swelling [Unknown]
  - Drug ineffective [Unknown]
  - Oedema peripheral [Unknown]
  - Fatigue [Unknown]
  - Dyschromatopsia [Recovering/Resolving]
  - Infusion site pain [Recovering/Resolving]
  - Product quality issue [Unknown]
  - Constipation [Unknown]
  - Restlessness [Unknown]

NARRATIVE: CASE EVENT DATE: 20240201
